FAERS Safety Report 18986830 (Version 1)
Quarter: 2021Q1

REPORT INFORMATION
  Report Type: Spontaneous
  Country: DE (occurrence: DE)
  Receive Date: 20210309
  Receipt Date: 20210309
  Transmission Date: 20210420
  Serious: Yes (Other)
  Sender: FDA-Public Use
  Company Number: DE-TEVA-2021-DE-1887279

PATIENT
  Age: 4 Month
  Sex: Male
  Weight: 3.85 kg

DRUGS (2)
  1. ALPHA?METHYLDOPA [Concomitant]
     Active Substance: METHYLDOPA
     Indication: HYPERTENSION
     Dosage: 1000 MILLIGRAM DAILY;  4 SEPARATED DOSES
     Route: 064
  2. VENLAFAXINE [Suspect]
     Active Substance: VENLAFAXINE HYDROCHLORIDE
     Indication: DEPRESSION
     Dosage: 225 MILLIGRAM DAILY;
     Route: 064

REACTIONS (3)
  - Foetal exposure during pregnancy [Unknown]
  - Myoclonus [Unknown]
  - Restlessness [Unknown]
